FAERS Safety Report 7817462-X (Version None)
Quarter: 2011Q4

REPORT INFORMATION
  Report Type: 
  Country: None (occurrence: None)
  Receive Date: 20111012
  Receipt Date: 20110928
  Transmission Date: 20120403
  Serious: Yes (Other)
  Sender: FDA-Public Use
  Company Number: 2011AP002249

PATIENT
  Age: 57 Year
  Sex: Male

DRUGS (4)
  1. PREDNISOLONE [Suspect]
     Indication: IMMUNOSUPPRESSION
  2. TACROLIMUS [Suspect]
     Indication: IMMUNOSUPPRESSION
  3. INTERLEUKIN-2 (INTERLEUKIN-2) [Concomitant]
  4. MYCOPHENOLATE MOFETIL [Suspect]
     Indication: IMMUNOSUPPRESSION

REACTIONS (5)
  - MYCETOMA MYCOTIC [None]
  - QUALITY OF LIFE DECREASED [None]
  - NODULE [None]
  - TREATMENT FAILURE [None]
  - FUNGAL INFECTION [None]
